FAERS Safety Report 20163588 (Version 1)
Quarter: 2021Q4

REPORT INFORMATION
  Report Type: Spontaneous
  Country: FR (occurrence: None)
  Receive Date: 20211209
  Receipt Date: 20211209
  Transmission Date: 20220303
  Serious: Yes (Other)
  Sender: FDA-Public Use
  Company Number: FR-ROCHE-2973484

PATIENT
  Age: 43 Year
  Sex: Female

DRUGS (2)
  1. MABTHERA [Suspect]
     Active Substance: RITUXIMAB
     Indication: Thrombotic thrombocytopenic purpura
     Dosage: X 7 WEEKLY DOSES BETWEEN JUNE AND JULY 2021
     Route: 065
  2. OBINUTUZUMAB [Suspect]
     Active Substance: OBINUTUZUMAB
     Indication: Thrombotic thrombocytopenic purpura
     Dosage: D1, D8 D15 AND NOW MONTHLY (PLANNED FOR 4 MONTHS)
     Route: 042
     Dates: start: 202008, end: 202111

REACTIONS (5)
  - Thrombotic thrombocytopenic purpura [Unknown]
  - ADAMTS13 activity increased [Unknown]
  - ADAMTS13 activity decreased [Unknown]
  - Off label use [Unknown]
  - Off label use [Unknown]
